FAERS Safety Report 17003069 (Version 2)
Quarter: 2019Q4

REPORT INFORMATION
  Report Type: Spontaneous
  Country: FR (occurrence: FR)
  Receive Date: 20191107
  Receipt Date: 20191120
  Transmission Date: 20200122
  Serious: Yes (Hospitalization)
  Sender: FDA-Public Use
  Company Number: FR-ABBVIE-19P-056-2988178-00

PATIENT
  Age: 54 Year
  Sex: Female

DRUGS (2)
  1. ENANTONE LP [Suspect]
     Active Substance: LEUPROLIDE ACETATE
     Indication: FIBROMA
     Route: 058
     Dates: start: 199802, end: 199811
  2. LUTENYL [Suspect]
     Active Substance: NOMEGESTROL ACETATE
     Indication: FIBROMA
     Route: 048
     Dates: start: 1998

REACTIONS (1)
  - Rheumatoid arthritis [Not Recovered/Not Resolved]

NARRATIVE: CASE EVENT DATE: 2015
